FAERS Safety Report 24090928 (Version 2)
Quarter: 2024Q3

REPORT INFORMATION
  Report Type: Spontaneous
  Country: FR (occurrence: FR)
  Receive Date: 20240715
  Receipt Date: 20240718
  Transmission Date: 20241016
  Serious: Yes (Hospitalization, Other)
  Sender: MYLAN
  Company Number: FR-STADA-01262458

PATIENT
  Age: 33 Year
  Sex: Female

DRUGS (2)
  1. TRAMADOL [Suspect]
     Active Substance: TRAMADOL\TRAMADOL HYDROCHLORIDE
     Indication: Product used for unknown indication
     Dosage: 1300 MILLIGRAM, QD (7 TABLETS OF TRAMADOL LP 100 MG IN THE MORNING AND 6 IN THE EVENING)
     Route: 048
  2. TRAMADOL [Suspect]
     Active Substance: TRAMADOL\TRAMADOL HYDROCHLORIDE
     Dosage: 1100 MILLIGRAM, QD
     Route: 065

REACTIONS (6)
  - Drug use disorder [Unknown]
  - Drug withdrawal convulsions [Unknown]
  - Drug dependence [Unknown]
  - Affective disorder [Unknown]
  - Prescribed overdose [Unknown]
  - Off label use [Unknown]
